FAERS Safety Report 11334366 (Version 2)
Quarter: 2015Q3

REPORT INFORMATION
  Report Type: Report from Study
  Country: FR (occurrence: FR)
  Receive Date: 20150804
  Receipt Date: 20150825
  Transmission Date: 20151125
  Serious: Yes (Hospitalization)
  Sender: FDA-Public Use
  Company Number: FR-ROCHE-1617139

PATIENT
  Age: 49 Year
  Sex: Male

DRUGS (5)
  1. CYCLOPHOSPHAMIDE. [Concomitant]
     Active Substance: CYCLOPHOSPHAMIDE
     Indication: DIFFUSE LARGE B-CELL LYMPHOMA
     Dosage: DOSE AND FREQUENCY AS PER PROTOCOL
     Route: 065
     Dates: start: 20150519
  2. PREDNISONE. [Concomitant]
     Active Substance: PREDNISONE
     Indication: DIFFUSE LARGE B-CELL LYMPHOMA
     Dosage: DOSE AND FREQUENCY AS PER PROTOCOL
     Route: 065
     Dates: start: 20150519
  3. DOXORUBICIN [Concomitant]
     Active Substance: DOXORUBICIN
     Indication: DIFFUSE LARGE B-CELL LYMPHOMA
     Dosage: DOSE AND FREQUENCY AS PER PROTOCOL
     Route: 065
     Dates: start: 20150519
  4. OBINUTUZUMAB [Suspect]
     Active Substance: OBINUTUZUMAB
     Indication: DIFFUSE LARGE B-CELL LYMPHOMA
     Dosage: DAYS 1 AND 8 OF FIRST 2 CYCLES THEN DAY 1 OF EACH 14-DAY CYCLE (ROUTE, DOSE AND FREQUENCY AS PER PRO
     Route: 042
     Dates: start: 20150519
  5. VINCRISTINE [Concomitant]
     Active Substance: VINCRISTINE
     Indication: DIFFUSE LARGE B-CELL LYMPHOMA
     Dosage: DOSE AND FREQUENCY AS PER PROTOCOL
     Route: 065
     Dates: start: 20150519

REACTIONS (1)
  - Bacteraemia [Recovered/Resolved]

NARRATIVE: CASE EVENT DATE: 20150811
